FAERS Safety Report 4529312-8 (Version None)
Quarter: 2004Q4

REPORT INFORMATION
  Report Type: 
  Country: None (occurrence: None)
  Receive Date: 20041202
  Receipt Date: 20040819
  Transmission Date: 20050328
  Serious: No
  Sender: FDA-Public Use
  Company Number: 200420248BWH

PATIENT
  Age: 72 Year
  Sex: Male
  Weight: 97.5234 kg

DRUGS (11)
  1. LEVITRA [Suspect]
     Indication: ERECTILE DYSFUNCTION
     Dosage: 10 MG, PRN, ORAL
     Route: 048
     Dates: start: 20040701
  2. LEVITRA [Suspect]
     Dosage: 20 MG, PRN, ORAL
     Route: 048
     Dates: start: 20040801
  3. PREDNISONE [Concomitant]
  4. LASIX [Concomitant]
  5. ADVAIR DISKUS 100/50 [Concomitant]
  6. ALBUTEROL [Concomitant]
  7. COUMADIN [Concomitant]
  8. ATACAND [Concomitant]
  9. SINGULAIR [Concomitant]
  10. ALLEGRA [Concomitant]
  11. DIABETA [Concomitant]

REACTIONS (2)
  - ERECTILE DYSFUNCTION [None]
  - HEADACHE [None]
